FAERS Safety Report 4287653-6 (Version None)
Quarter: 2004Q1

REPORT INFORMATION
  Report Type: 
  Country: None (occurrence: None)
  Receive Date: 20040209
  Receipt Date: 20030819
  Transmission Date: 20041129
  Serious: No
  Sender: FDA-Public Use
  Company Number: US-GLAXOSMITHKLINE-A0422641A

PATIENT
  Age: 61 Year
  Sex: Female

DRUGS (3)
  1. PAXIL [Suspect]
     Indication: DEPRESSION
     Dosage: 12.5MG PER DAY
     Route: 048
     Dates: start: 20030603, end: 20030729
  2. NORVASC [Concomitant]
  3. LIDOCAINE + MAALOX [Concomitant]

REACTIONS (5)
  - AGEUSIA [None]
  - PHARYNGOLARYNGEAL PAIN [None]
  - STRABISMUS [None]
  - SWOLLEN TONGUE [None]
  - WEIGHT DECREASED [None]
